FAERS Safety Report 13115238 (Version 1)
Quarter: 2017Q1

REPORT INFORMATION
  Report Type: Report from Study
  Country: US (occurrence: US)
  Receive Date: 20170113
  Receipt Date: 20170113
  Transmission Date: 20170428
  Serious: Yes (Death, Disabling)
  Sender: FDA-Public Use
  Company Number: US-ACTELION-A-NJ2016-146698

PATIENT
  Age: 70 Year
  Sex: Male

DRUGS (2)
  1. OPSUMIT [Suspect]
     Active Substance: MACITENTAN
     Indication: PULMONARY ARTERIAL HYPERTENSION
     Dosage: 10 MG, QD
     Route: 048
     Dates: start: 20150616
  2. ADCIRCA [Concomitant]
     Active Substance: TADALAFIL
     Dosage: 2 T, QD
     Route: 048
     Dates: start: 20160228

REACTIONS (3)
  - Death [Fatal]
  - Asthenia [Not Recovered/Not Resolved]
  - Oxygen consumption increased [Not Recovered/Not Resolved]

NARRATIVE: CASE EVENT DATE: 20161109
